FAERS Safety Report 16170828 (Version 2)
Quarter: 2019Q2

REPORT INFORMATION
  Report Type: Spontaneous
  Country: US (occurrence: US)
  Receive Date: 20190408
  Receipt Date: 20190501
  Transmission Date: 20190711
  Serious: Yes (Life-Threatening)
  Sender: FDA-Public Use
  Company Number: US-LA JOLLA PHARMACEUTICAL COMPANY-0000290

PATIENT
  Age: 71 Year
  Sex: Male

DRUGS (4)
  1. VASOPRESSIN. [Concomitant]
     Active Substance: VASOPRESSIN
     Indication: SEPTIC SHOCK
     Dosage: UNK
  2. EPINEPHRINE. [Concomitant]
     Active Substance: EPINEPHRINE
     Indication: SEPTIC SHOCK
     Dosage: UNK
  3. GIAPREZA [Suspect]
     Active Substance: ANGIOTENSIN II
     Indication: SEPTIC SHOCK
     Dosage: 40 NG/KG/MIN, UNK
  4. NOREPINEPHRINE. [Concomitant]
     Active Substance: NOREPINEPHRINE
     Indication: SEPTIC SHOCK
     Dosage: UNK

REACTIONS (2)
  - Hypotension [Recovered/Resolved]
  - Tachycardia [Recovered/Resolved]
